FAERS Safety Report 10169356 (Version 2)
Quarter: 2014Q2

REPORT INFORMATION
  Report Type: Spontaneous
  Country: US (occurrence: US)
  Receive Date: 20140513
  Receipt Date: 20140610
  Transmission Date: 20141212
  Serious: No
  Sender: FDA-Public Use
  Company Number: US-PFIZER INC-2014127798

PATIENT
  Age: 78 Year
  Sex: Female
  Weight: 48.98 kg

DRUGS (1)
  1. REVATIO [Suspect]
     Indication: PULMONARY HYPERTENSION
     Dosage: 10 MG, 3X/DAY
     Route: 048
     Dates: start: 201405, end: 201405

REACTIONS (1)
  - Heart rate increased [Recovered/Resolved]
